FAERS Safety Report 12266227 (Version 1)
Quarter: 2016Q2

REPORT INFORMATION
  Report Type: Spontaneous
  Country: US (occurrence: None)
  Receive Date: 20160413
  Receipt Date: 20160413
  Transmission Date: 20160815
  Serious: Yes (Life-Threatening, Hospitalization, Disabling)
  Sender: FDA-Public Use
  Company Number: None

PATIENT
  Age: 72 Year
  Sex: Male
  Weight: 79.38 kg

DRUGS (1)
  1. AMIODARONE [Suspect]
     Active Substance: AMIODARONE
     Indication: ATRIAL FIBRILLATION
     Route: 048
     Dates: start: 20150115, end: 20150915

REACTIONS (5)
  - Respiratory failure [None]
  - Pulmonary toxicity [None]
  - Dyspnoea [None]
  - Balance disorder [None]
  - Asthenia [None]

NARRATIVE: CASE EVENT DATE: 20150901
